FAERS Safety Report 7578669-2 (Version None)
Quarter: 2011Q2

REPORT INFORMATION
  Report Type: 
  Country: None (occurrence: None)
  Receive Date: 20110628
  Receipt Date: 20110624
  Transmission Date: 20111010
  Serious: Yes (Hospitalization)
  Sender: FDA-Public Use
  Company Number: PHHO2010RU07821

PATIENT
  Sex: Female
  Weight: 59 kg

DRUGS (1)
  1. GILENYA [Suspect]
     Indication: MULTIPLE SCLEROSIS
     Dosage: CODE NOT BROKEN
     Route: 048
     Dates: start: 20090604

REACTIONS (1)
  - BREAST MASS [None]
